FAERS Safety Report 5130759-X (Version None)
Quarter: 2006Q3

REPORT INFORMATION
  Report Type: 
  Country: None (occurrence: None)
  Receive Date: 20060829
  Receipt Date: 20060519
  Transmission Date: 20061208
  Serious: No
  Sender: FDA-Public Use
  Company Number: PHEH2006US06650

PATIENT
  Age: 18 Year
  Sex: Female
  Weight: 29.9 kg

DRUGS (1)
  1. EXJADE [Suspect]
     Dosage: 1500 MG, QD, ORAL
     Route: 048
     Dates: start: 20060417, end: 20060517

REACTIONS (2)
  - HEADACHE [None]
  - VISION BLURRED [None]
